FAERS Safety Report 13063753 (Version 1)
Quarter: 2016Q4

REPORT INFORMATION
  Report Type: Spontaneous
  Country: US (occurrence: US)
  Receive Date: 20161227
  Receipt Date: 20161227
  Transmission Date: 20170207
  Serious: No
  Sender: FDA-Public Use
  Company Number: US-PFIZER INC-2016585156

PATIENT
  Sex: Female

DRUGS (1)
  1. XELJANZ [Suspect]
     Active Substance: TOFACITINIB CITRATE
     Dosage: 5 MG

REACTIONS (8)
  - Lymphocyte count abnormal [Unknown]
  - Inflammation [Unknown]
  - Joint range of motion decreased [Unknown]
  - Full blood count abnormal [Unknown]
  - Blood creatinine abnormal [Unknown]
  - Neck pain [Unknown]
  - Blood pressure increased [Unknown]
  - Arthralgia [Unknown]
